FAERS Safety Report 8212839-5 (Version None)
Quarter: 2012Q1

REPORT INFORMATION
  Report Type: 
  Country: None (occurrence: None)
  Receive Date: 20120315
  Receipt Date: 20120308
  Transmission Date: 20120608
  Serious: Yes (Other)
  Sender: FDA-Public Use
  Company Number: US-ABBOTT-12P-163-0911897-00

PATIENT
  Sex: Male
  Weight: 70.37 kg

DRUGS (8)
  1. VITAMIN TAB [Concomitant]
     Indication: PRODUCT USED FOR UNKNOWN INDICATION
  2. NEURONTIN [Concomitant]
     Indication: DEPRESSION
     Route: 048
  3. VICODIN [Suspect]
     Indication: BACK PAIN
     Route: 048
     Dates: start: 20100301
  4. NEURONTIN [Concomitant]
     Indication: RESTLESS LEGS SYNDROME
  5. CHANTIX [Suspect]
     Indication: EX-TOBACCO USER
     Route: 048
     Dates: start: 20120101, end: 20120101
  6. CHANTIX [Suspect]
  7. VIAGRA [Suspect]
     Indication: ERECTILE DYSFUNCTION
     Route: 048
     Dates: start: 20110301
  8. ZOLOFT [Suspect]
     Indication: DEPRESSION
     Route: 048

REACTIONS (6)
  - MEASLES ANTIBODY NEGATIVE [None]
  - HYPERSOMNIA [None]
  - DEPRESSION [None]
  - NIGHTMARE [None]
  - ERECTILE DYSFUNCTION [None]
  - MUMPS ANTIBODY TEST NEGATIVE [None]
